FAERS Safety Report 9524337 (Version 1)
Quarter: 2013Q3

REPORT INFORMATION
  Report Type: Spontaneous
  Country: US (occurrence: None)
  Receive Date: 20130912
  Receipt Date: 20130912
  Transmission Date: 20140515
  Serious: Yes (Hospitalization)
  Sender: FDA-Public Use
  Company Number: None

PATIENT
  Age: 57 None
  Sex: Female

DRUGS (7)
  1. MULTAQ [Suspect]
     Indication: ATRIAL FIBRILLATION
     Dosage: 400, 1 TWICE A DAY BY MOUTH WITH FOOD
     Route: 048
     Dates: start: 20130418, end: 20130425
  2. DIOGOXIN [Concomitant]
  3. DILTIAZEM [Concomitant]
  4. DETROL [Concomitant]
  5. BONIVA [Concomitant]
  6. CALCIUM WITH D STOLL SOFTNERS [Concomitant]
  7. FIBER GUMMIES [Concomitant]

REACTIONS (4)
  - Rash [None]
  - Pruritus [None]
  - No therapeutic response [None]
  - Discomfort [None]
